FAERS Safety Report 18504625 (Version 1)
Quarter: 2020Q4

REPORT INFORMATION
  Report Type: Spontaneous
  Country: US (occurrence: US)
  Receive Date: 20201115
  Receipt Date: 20201115
  Transmission Date: 20210114
  Serious: No
  Sender: FDA-Public Use
  Company Number: US-GLAXOSMITHKLINE-US2020AMR218325

PATIENT
  Sex: Female

DRUGS (5)
  1. BREATHE RIGHT NASAL STRIPS CLEAR (DEIVCE) [Suspect]
     Active Substance: DEVICE
     Indication: PRODUCT USED FOR UNKNOWN INDICATION
     Dosage: UNK
  2. BREATHE RIGHT SENSITIVE SKIN (DEVICE) [Suspect]
     Active Substance: DEVICE
     Indication: PRODUCT USED FOR UNKNOWN INDICATION
     Dosage: UNK
  3. EQUATE NICOTINE [Suspect]
     Active Substance: NICOTINE
  4. EQUATE NICOTINE [Suspect]
     Active Substance: NICOTINE
     Indication: PRODUCT USED FOR UNKNOWN INDICATION
     Dosage: UNK
  5. EQUATE NICOTINE [Suspect]
     Active Substance: NICOTINE
     Indication: PRODUCT USED FOR UNKNOWN INDICATION
     Dosage: UNK

REACTIONS (7)
  - Application site discomfort [Unknown]
  - Application site scab [Unknown]
  - Application site irritation [Unknown]
  - Application site erythema [Unknown]
  - Application site reaction [Unknown]
  - Application site dryness [Unknown]
  - Wrong technique in product usage process [Unknown]
